FAERS Safety Report 14416750 (Version 1)
Quarter: 2018Q1

REPORT INFORMATION
  Report Type: Spontaneous
  Country: US (occurrence: US)
  Receive Date: 20180119
  Receipt Date: 20180119
  Transmission Date: 20180509
  Serious: Yes (Hospitalization)
  Sender: FDA-Public Use
  Company Number: None

PATIENT
  Age: 53 Year
  Sex: Female

DRUGS (14)
  1. GUAFENESIN [Concomitant]
     Active Substance: GUAIFENESIN
  2. IBUPROFEN. [Concomitant]
     Active Substance: IBUPROFEN
  3. TRIAMCINOLONE CREAM [Concomitant]
     Active Substance: TRIAMCINOLONE
  4. MELATONIN [Concomitant]
     Active Substance: MELATONIN
  5. DOCUSATE [Concomitant]
     Active Substance: DOCUSATE
  6. FOLIC ACID. [Concomitant]
     Active Substance: FOLIC ACID
  7. LORATADINE. [Concomitant]
     Active Substance: LORATADINE
  8. MAGNESIUM OXIDE. [Concomitant]
     Active Substance: MAGNESIUM OXIDE
  9. METHOTREXATE. [Concomitant]
     Active Substance: METHOTREXATE
  10. HYDROXYCHLOROQUINE [Suspect]
     Active Substance: HYDROXYCHLOROQUINE
     Indication: RHEUMATOID ARTHRITIS
     Route: 048
     Dates: start: 20161002, end: 20171011
  11. MORPHINE [Concomitant]
     Active Substance: MORPHINE
  12. THIAMINE. [Concomitant]
     Active Substance: THIAMINE
  13. LIDOCAINE. [Concomitant]
     Active Substance: LIDOCAINE
  14. SODIUM CHLORIDE. [Concomitant]
     Active Substance: SODIUM CHLORIDE

REACTIONS (7)
  - Dysphagia [None]
  - Myopathy [None]
  - Depressed level of consciousness [None]
  - Hypotension [None]
  - Unresponsive to stimuli [None]
  - Weaning failure [None]
  - Asthenia [None]

NARRATIVE: CASE EVENT DATE: 20171003
